FAERS Safety Report 22593805 (Version 4)
Quarter: 2023Q4

REPORT INFORMATION
  Report Type: Spontaneous
  Country: US (occurrence: US)
  Receive Date: 20230613
  Receipt Date: 20231220
  Transmission Date: 20240110
  Serious: No
  Sender: FDA-Public Use
  Company Number: US-BRISTOL-MYERS SQUIBB COMPANY-2023-082082

PATIENT
  Age: 61 Year
  Sex: Female

DRUGS (1)
  1. REVLIMID [Suspect]
     Active Substance: LENALIDOMIDE
     Indication: Plasma cell myeloma
     Dosage: FREQ: 21 ON/7 OFF/QD X 21 DAYS AND 7 DAYS OFF
     Route: 048

REACTIONS (5)
  - Asthenia [Unknown]
  - Headache [Unknown]
  - Dizziness [Unknown]
  - Nasopharyngitis [Unknown]
  - Herpes zoster [Unknown]
